FAERS Safety Report 5028054-2 (Version None)
Quarter: 2006Q2

REPORT INFORMATION
  Report Type: 
  Country: None (occurrence: None)
  Receive Date: 20060501
  Receipt Date: 20060208
  Transmission Date: 20061013
  Serious: No
  Sender: FDA-Public Use
  Company Number: 200611307US

PATIENT
  Age: 40 Year
  Sex: Female
  Weight: 83 kg

DRUGS (3)
  1. KETEK [Suspect]
     Indication: INFECTION
     Dosage: QD
     Dates: start: 20060127, end: 20060127
  2. VITAMINS [Concomitant]
  3. SYNTHROID [Concomitant]

REACTIONS (5)
  - ABDOMINAL PAIN UPPER [None]
  - DIARRHOEA [None]
  - DYSGEUSIA [None]
  - INFECTION [None]
  - VISION BLURRED [None]
